FAERS Safety Report 5958192-9 (Version None)
Quarter: 2008Q4

REPORT INFORMATION
  Report Type: 
  Country: None (occurrence: None)
  Receive Date: 20081117
  Receipt Date: 20081117
  Transmission Date: 20090506
  Serious: Yes (Death)
  Sender: FDA-Public Use
  Company Number: None

PATIENT
  Sex: Male

DRUGS (1)
  1. PAXIL [Suspect]
     Indication: CONVULSION

REACTIONS (2)
  - COMPLETED SUICIDE [None]
  - DEPRESSION [None]
